FAERS Safety Report 8304972-4 (Version None)
Quarter: 2012Q2

REPORT INFORMATION
  Report Type: 
  Country: None (occurrence: None)
  Receive Date: 20120423
  Receipt Date: 20120416
  Transmission Date: 20120825
  Serious: No
  Sender: FDA-Public Use
  Company Number: US-BAYER-2012-038814

PATIENT
  Sex: Female
  Weight: 63 kg

DRUGS (1)
  1. ALEVE (CAPLET) [Suspect]
     Dosage: 2 TAB A DAY AND REDUCED TO 1TAB A DAY
     Route: 048
     Dates: start: 20111201

REACTIONS (1)
  - RASH [None]
